FAERS Safety Report 18989081 (Version 3)
Quarter: 2021Q1

REPORT INFORMATION
  Report Type: Spontaneous
  Country: GB (occurrence: GB)
  Receive Date: 20210309
  Receipt Date: 20210323
  Transmission Date: 20210420
  Serious: Yes (Other)
  Sender: FDA-Public Use
  Company Number: GB-CANTON LABORATORIES, LLC-2107797

PATIENT
  Sex: Female

DRUGS (3)
  1. NAPROSYN [Suspect]
     Active Substance: NAPROXEN
     Indication: RHEUMATIC DISORDER
     Route: 065
     Dates: start: 20210222
  2. HUMALOG [Concomitant]
     Active Substance: INSULIN LISPRO
     Route: 065
  3. BENDROFLUMETHIAZIDE [Concomitant]
     Active Substance: BENDROFLUMETHIAZIDE
     Route: 065

REACTIONS (3)
  - Constipation [Unknown]
  - Diabetes mellitus [Not Recovered/Not Resolved]
  - Abdominal distension [Unknown]

NARRATIVE: CASE EVENT DATE: 20210222
